FAERS Safety Report 20461155 (Version 1)
Quarter: 2022Q1

REPORT INFORMATION
  Report Type: Report from Study
  Country: IE (occurrence: None)
  Receive Date: 20220211
  Receipt Date: 20220211
  Transmission Date: 20220423
  Serious: Yes (Other)
  Sender: FDA-Public Use
  Company Number: IE-Merck Healthcare KGaA-9299295

PATIENT
  Sex: Female

DRUGS (4)
  1. MAVENCLAD [Suspect]
     Active Substance: CLADRIBINE
     Indication: Multiple sclerosis
     Dosage: YEAR ONE WEEK ONE THERAPY: TWO DOSAGE FORMS ON DAYS 1 AND 2 AND ONE DOSAGE ON DAY 3 TO 5
     Route: 048
     Dates: start: 20200203
  2. MAVENCLAD [Suspect]
     Active Substance: CLADRIBINE
     Dosage: YEAR ONE WEEK FIVE THERAPY: TWO DOSAGE FORMS ON DAYS 1 AND 2 AND ONE DOSAGE ON DAY 3 TO 5
     Route: 048
     Dates: start: 20200302
  3. MAVENCLAD [Suspect]
     Active Substance: CLADRIBINE
     Dosage: YEAR TWO WEEK FIVE THERAPY: TWO DOSAGE FORMS ON DAYS 1 AND 2 AND ONE DOSAGE ON DAY 3 TO 5
     Route: 048
     Dates: start: 20210222
  4. MAVENCLAD [Suspect]
     Active Substance: CLADRIBINE
     Dosage: YEAR TWO WEEK FIVE THERAPY: TWO DOSAGE FORMS ON DAYS 1 AND 2 AND ONE DOSAGE ON DAY 3 TO 5
     Route: 048
     Dates: start: 20210322

REACTIONS (1)
  - Diabetes mellitus [Unknown]
